FAERS Safety Report 9633146 (Version 1)
Quarter: 2013Q4

REPORT INFORMATION
  Report Type: Spontaneous
  Country: US (occurrence: US)
  Receive Date: 20131019
  Receipt Date: 20131019
  Transmission Date: 20140711
  Serious: No
  Sender: FDA-Public Use
  Company Number: US-009507513-1310USA007653

PATIENT
  Sex: Female

DRUGS (11)
  1. DULERA [Suspect]
     Indication: DYSPNOEA
     Dosage: 200/5 MICROGRAM, TWICE DAILY (ONCE IN MORNING AND ONCE AT NIGHT)
     Route: 055
  2. PROVENTIL [Concomitant]
     Route: 055
  3. SPIRIVA [Concomitant]
  4. TRAZODONE HYDROCHLORIDE [Concomitant]
  5. AMLODIPINE [Concomitant]
  6. PRAVASTATIN SODIUM [Concomitant]
  7. CLOPIDOGREL [Concomitant]
  8. PROPRANOLOL HYDROCHLORIDE [Concomitant]
  9. ALPRAZOLAM [Concomitant]
  10. PREDNISONE [Concomitant]
     Route: 048
  11. OXYGEN [Concomitant]
     Dosage: UNK
     Dates: start: 201110

REACTIONS (6)
  - Epistaxis [Not Recovered/Not Resolved]
  - Scab [Not Recovered/Not Resolved]
  - Dyspnoea [Not Recovered/Not Resolved]
  - Dysphonia [Not Recovered/Not Resolved]
  - Throat tightness [Unknown]
  - Rash [Unknown]
